FAERS Safety Report 9846687 (Version 1)
Quarter: 2014Q1

REPORT INFORMATION
  Report Type: Spontaneous
  Country: CA (occurrence: CA)
  Receive Date: 20140127
  Receipt Date: 20140127
  Transmission Date: 20141002
  Serious: Yes (Life-Threatening, Other)
  Sender: FDA-Public Use
  Company Number: CA-TEVA-458536USA

PATIENT
  Age: 56 Year
  Sex: Female
  Weight: 63.56 kg

DRUGS (1)
  1. HALOPERIDOL [Suspect]
     Dosage: .5 MILLIGRAM DAILY;
     Route: 048

REACTIONS (5)
  - Suicidal ideation [Recovered/Resolved]
  - Decreased appetite [Recovered/Resolved]
  - Depression [Recovered/Resolved]
  - Fatigue [Recovered/Resolved]
  - Somnolence [Recovered/Resolved]
